FAERS Safety Report 4316327-8 (Version None)
Quarter: 2004Q1

REPORT INFORMATION
  Report Type: 
  Country: None (occurrence: None)
  Receive Date: 20040312
  Receipt Date: 20040212
  Transmission Date: 20041129
  Serious: Yes (Hospitalization)
  Sender: FDA-Public Use
  Company Number: FR-BRISTOL-MYERS SQUIBB COMPANY-12530358

PATIENT
  Age: 57 Year
  Sex: Female

DRUGS (2)
  1. TAXOL [Suspect]
     Indication: OVARIAN CANCER METASTATIC
     Route: 042
     Dates: start: 20040107, end: 20040107
  2. CARBOPLATIN [Suspect]
     Indication: OVARIAN CANCER METASTATIC
     Dosage: AUC 5
     Dates: start: 20040107, end: 20040107

REACTIONS (2)
  - DERMATITIS BULLOUS [None]
  - PARANEOPLASTIC SYNDROME [None]
